FAERS Safety Report 9511953 (Version 1)
Quarter: 2013Q1

REPORT INFORMATION
  Report Type: Spontaneous
  Country: US (occurrence: None)
  Receive Date: 20130305
  Receipt Date: 20130305
  Transmission Date: 20140127
  Serious: Yes (Disabling)
  Sender: FDA-Public Use
  Company Number: 163-21880-12051807

PATIENT
  Age: 69 Year
  Sex: Male

DRUGS (15)
  1. REVLIMID (LENALIDOMIDE) (25 MILLIGRAM, CAPSULES) [Suspect]
     Indication: PLASMA CELL MYELOMA
     Route: 048
     Dates: start: 20100930
  2. ONDANSETRON (ONDANSETRON) [Concomitant]
  3. ZYMAXID (GATIFLOXACIN) [Concomitant]
  4. DICLOPENAC SODIUM (DICLOFENAC SODIUM0 [Concomitant]
  5. PREDNISONE (PREDNISONE) [Concomitant]
  6. ASA (ACETYLSALICYLIC ACID) [Concomitant]
  7. METOPROLOL (METOPROLOL) [Concomitant]
  8. COMPAZINE (PROCHLORPERAZINE EDISYLATE) [Concomitant]
  9. AZASITE (AZITHROMYCIN) [Concomitant]
  10. IQUIX (LEVOFLOXACIN) [Concomitant]
  11. VALCYTE (VALGANCICLOVIR HYDROCHLORIDE) (VALGANCICLOVIR HYDROCHLORIDE) [Concomitant]
  12. ZUPLENZ (ONDANSETRON) [Concomitant]
  13. DEXAMETHASONE (DEXAMETHASONE) [Concomitant]
  14. PREDNISOLONE AC (PREDNISOLONE ACETATE) [Concomitant]
  15. METOPROLOL ER SUCCINATE (METOPROLOL SUCCINATE) [Concomitant]

REACTIONS (1)
  - Plasma cell myeloma [None]
